FAERS Safety Report 20144880 (Version 1)
Quarter: 2021Q4

REPORT INFORMATION
  Report Type: Spontaneous
  Country: US (occurrence: US)
  Receive Date: 20211203
  Receipt Date: 20211203
  Transmission Date: 20220303
  Serious: Yes (Other)
  Sender: FDA-Public Use
  Company Number: US-ALNYLAM PHARMACEUTICALS, INC.-ALN-2021-003207

PATIENT

DRUGS (1)
  1. ONPATTRO [Suspect]
     Active Substance: PATISIRAN SODIUM
     Indication: Amyloidosis senile
     Dosage: UNK
     Route: 042
     Dates: start: 20210301

REACTIONS (13)
  - Deep vein thrombosis [Unknown]
  - Nausea [Recovered/Resolved]
  - Hiccups [Unknown]
  - Pulmonary embolism [Unknown]
  - General physical health deterioration [Unknown]
  - Heart rate irregular [Unknown]
  - Palpitations [Unknown]
  - Vision blurred [Unknown]
  - Dyspnoea exertional [Unknown]
  - Asthenia [Unknown]
  - Fatigue [Unknown]
  - Syncope [Unknown]
  - Oedema peripheral [Unknown]
